FAERS Safety Report 8978919 (Version 2)
Quarter: 2013Q1

REPORT INFORMATION
  Report Type: Spontaneous
  Country: US (occurrence: US)
  Receive Date: 20121221
  Receipt Date: 20130204
  Transmission Date: 20140127
  Serious: Yes (Other)
  Sender: FDA-Public Use
  Company Number: US-AMGEN-USASP2012081823

PATIENT
  Age: 50 Year
  Sex: Female
  Weight: 62.59 kg

DRUGS (3)
  1. ENBREL [Suspect]
     Indication: PSORIASIS
     Dosage: 50 MG, QWK
     Route: 058
     Dates: start: 201105, end: 201212
  2. ENBREL [Suspect]
     Indication: PSORIATIC ARTHROPATHY
  3. VITAMIN C                          /00008001/ [Concomitant]
     Dosage: 1000 MG, UNK

REACTIONS (4)
  - Benign neoplasm of thyroid gland [Unknown]
  - Alopecia [Unknown]
  - Epistaxis [Unknown]
  - Sinusitis [Unknown]
